FAERS Safety Report 24923820 (Version 2)
Quarter: 2025Q3

REPORT INFORMATION
  Report Type: Spontaneous
  Country: EU (occurrence: EU)
  Receive Date: 20250204
  Receipt Date: 20250810
  Transmission Date: 20251020
  Serious: Yes (Other)
  Sender: ALEXION PHARMACEUTICALS
  Company Number: EU-AstraZeneca-CH-00795316A

PATIENT

DRUGS (1)
  1. ANIFROLUMAB [Suspect]
     Active Substance: ANIFROLUMAB
     Indication: Cutaneous symptom
     Route: 065

REACTIONS (6)
  - Pyelonephritis [Unknown]
  - Off label use [Unknown]
  - Muscle disorder [Unknown]
  - Impetigo [Unknown]
  - Arthralgia [Unknown]
  - Herpes zoster [Unknown]
